FAERS Safety Report 25060203 (Version 2)
Quarter: 2025Q4

REPORT INFORMATION
  Report Type: Report from Study
  Country: EU (occurrence: EU)
  Receive Date: 20250310
  Receipt Date: 20251208
  Transmission Date: 20260118
  Serious: Yes (Death, Hospitalization)
  Sender: PFIZER
  Company Number: EU-AstraZeneca-2024A197234

PATIENT
  Age: 50 Year
  Sex: Male
  Weight: 89 kg

DRUGS (20)
  1. CARBOPLATIN [Suspect]
     Active Substance: CARBOPLATIN
     Indication: Non-small cell lung cancer metastatic
     Dosage: 750 MG, EVERY 3 WEEKS
     Route: 042
     Dates: start: 20240626, end: 20240626
  2. CARBOPLATIN [Suspect]
     Active Substance: CARBOPLATIN
     Dosage: 750 MG, EVERY 3 WEEKS
     Route: 042
     Dates: start: 20240717, end: 20240717
  3. CARBOPLATIN [Suspect]
     Active Substance: CARBOPLATIN
     Dosage: 750 MG, EVERY 3 WEEKS
     Route: 042
     Dates: start: 20240807, end: 20240807
  4. PEMBROLIZUMAB [Suspect]
     Active Substance: PEMBROLIZUMAB
     Indication: Non-small cell lung cancer metastatic
     Dosage: 200 MG, EVERY 3 WEEKS
     Route: 042
     Dates: start: 20240717, end: 20240717
  5. PEMBROLIZUMAB [Suspect]
     Active Substance: PEMBROLIZUMAB
     Dosage: 200 MG, EVERY 3 WEEKS
     Route: 042
     Dates: start: 20240626, end: 20240626
  6. PEMBROLIZUMAB [Suspect]
     Active Substance: PEMBROLIZUMAB
     Dosage: 200 MG, EVERY 3 WEEKS
     Route: 042
     Dates: start: 20240807, end: 20240807
  7. PEMETREXED [Suspect]
     Active Substance: PEMETREXED
     Indication: Non-small cell lung cancer metastatic
     Dosage: 500 MG/M2, EVERY 3 WEEKS
     Route: 042
     Dates: start: 20240807, end: 20240807
  8. PEMETREXED [Suspect]
     Active Substance: PEMETREXED
     Dosage: 500 MG/M2, EVERY 3 WEEKS
     Route: 042
     Dates: start: 20240626, end: 20240626
  9. PEMETREXED [Suspect]
     Active Substance: PEMETREXED
     Dosage: 500 MG/M2, EVERY 3 WEEKS
     Route: 042
     Dates: start: 20240717, end: 20240717
  10. DIMETHINDENE [Concomitant]
     Active Substance: DIMETHINDENE
     Indication: Premedication
     Dosage: 8 MG, ONCE EVERY 3 WK
     Route: 048
     Dates: start: 20240626
  11. HYDROFLUX [FUROSEMIDE] [Concomitant]
     Indication: Coronary artery disease
     Dosage: 420 MILLIGRAM, BID
     Route: 048
     Dates: start: 2018
  12. ZANTAC [Concomitant]
     Active Substance: RANITIDINE HYDROCHLORIDE
     Indication: Premedication
     Dosage: 50 MG, ONCE EVERY 3 WK
     Route: 048
     Dates: start: 20240626
  13. B12 [CYANOCOBALAMIN-TANNIN COMPLEX] [Concomitant]
     Indication: Premedication
     Dosage: 1000 UG, QD
     Route: 048
     Dates: start: 20240626
  14. ELEVEON [Concomitant]
     Indication: Coronary artery disease
     Dosage: 25 MG, QD
     Route: 048
     Dates: start: 2018
  15. ONDANSETRON [Concomitant]
     Active Substance: ONDANSETRON
     Indication: Premedication
     Dosage: 8 MG, ONCE EVERY 3 WK
     Route: 048
     Dates: start: 20240626
  16. ASPIRIN [Concomitant]
     Active Substance: ASPIRIN
     Indication: Coronary artery disease
     Dosage: 100 MG, QD
     Route: 048
     Dates: start: 2018
  17. METOPROLOL FUMARATE [Concomitant]
     Active Substance: METOPROLOL FUMARATE
     Indication: Hypertension
     Dosage: 50 MILLIGRAM, TID
     Route: 048
     Dates: start: 2018
  18. DECADRON [Concomitant]
     Active Substance: DEXAMETHASONE
     Indication: Premedication
     Dosage: 4 MG, ONCE EVERY 3 WK
     Route: 048
     Dates: start: 20240626
  19. DAPAGLIFLOZIN PROPANEDIOL [Concomitant]
     Active Substance: DAPAGLIFLOZIN PROPANEDIOL
     Indication: Diabetes mellitus
     Dosage: 10 MG, QD
     Route: 048
     Dates: start: 2022
  20. FOLIC ACID [Concomitant]
     Active Substance: FOLIC ACID
     Indication: Premedication
     Dosage: 400 UG, QD
     Route: 048
     Dates: start: 20240626

REACTIONS (1)
  - Sudden cardiac death [Fatal]

NARRATIVE: CASE EVENT DATE: 20240828
